FAERS Safety Report 11203604 (Version 3)
Quarter: 2015Q3

REPORT INFORMATION
  Report Type: Spontaneous
  Country: US (occurrence: US)
  Receive Date: 20150619
  Receipt Date: 20150807
  Transmission Date: 20151125
  Serious: Yes (Hospitalization)
  Sender: FDA-Public Use
  Company Number: US-UNITED THERAPEUTICS-UNT-2015-006266

PATIENT
  Age: 60 Year
  Sex: Female
  Weight: 58.5 kg

DRUGS (5)
  1. OPSUMIT [Concomitant]
     Active Substance: MACITENTAN
     Indication: PRODUCT USED FOR UNKNOWN INDICATION
  2. TYVASO [Suspect]
     Active Substance: TREPROSTINIL
     Dosage: 72-108 MICROGRAMS, QID
     Dates: start: 20130729
  3. TYVASO [Suspect]
     Active Substance: TREPROSTINIL
     Indication: PULMONARY HYPERTENSION
     Dosage: 72-108 ?G, QID
     Dates: start: 20130711
  4. TYVASO [Suspect]
     Active Substance: TREPROSTINIL
     Dosage: 18-54 ?G, QID
     Dates: start: 20130729
  5. TYVASO [Suspect]
     Active Substance: TREPROSTINIL
     Dosage: 72-108 ?G, QID
     Dates: start: 20130729

REACTIONS (9)
  - Pyrexia [Unknown]
  - Cardiac failure congestive [Unknown]
  - Malaise [Unknown]
  - Dyspnoea [Unknown]
  - Urinary tract infection [Unknown]
  - Pleural effusion [Unknown]
  - Oxygen saturation decreased [Unknown]
  - Cardiac discomfort [Unknown]
  - Fluid retention [Unknown]

NARRATIVE: CASE EVENT DATE: 2015
